FAERS Safety Report 15125384 (Version 1)
Quarter: 2018Q3

REPORT INFORMATION
  Report Type: Spontaneous
  Country: US (occurrence: US)
  Receive Date: 20180614
  Receipt Date: 20180614
  Transmission Date: 20181010
  Serious: Yes (Hospitalization)
  Sender: FDA-Public Use
  Company Number: None

PATIENT
  Sex: Male

DRUGS (7)
  1. IRON [Suspect]
     Active Substance: IRON
  2. PRAVASTATIN. [Concomitant]
     Active Substance: PRAVASTATIN
  3. SYNTHROID [Concomitant]
     Active Substance: LEVOTHYROXINE SODIUM
  4. BUPROPION. [Concomitant]
     Active Substance: BUPROPION
  5. XANAX [Concomitant]
     Active Substance: ALPRAZOLAM
  6. VITAMIN D3 [Concomitant]
     Active Substance: CHOLECALCIFEROL
  7. HUMIRA [Suspect]
     Active Substance: ADALIMUMAB
     Indication: CROHN^S DISEASE
     Route: 058
     Dates: start: 20170510

REACTIONS (3)
  - Pneumonia [None]
  - Feeling abnormal [None]
  - Cerebrovascular accident [None]
